FAERS Safety Report 6028574-8 (Version None)
Quarter: 2009Q1

REPORT INFORMATION
  Report Type: 
  Country: None (occurrence: None)
  Receive Date: 20090102
  Receipt Date: 20081211
  Transmission Date: 20090719
  Serious: Yes (Life-Threatening)
  Sender: FDA-Public Use
  Company Number: DSA_32946_2008

PATIENT
  Age: 104 Year
  Sex: Female

DRUGS (5)
  1. DILTIAZEM HCL [Suspect]
     Indication: HYPERTENSION
     Dosage: (200 MG QD ORAL)
     Route: 048
     Dates: end: 20081129
  2. BLOPRESS [Concomitant]
  3. SELBEX [Concomitant]
  4. FAMOTIDINE [Concomitant]
  5. MAGNESIUM OXIDE [Concomitant]

REACTIONS (8)
  - ALTERED STATE OF CONSCIOUSNESS [None]
  - BRADYCARDIA [None]
  - ELECTROCARDIOGRAM P WAVE ABNORMAL [None]
  - HEART RATE DECREASED [None]
  - PO2 DECREASED [None]
  - SICK SINUS SYNDROME [None]
  - SYNCOPE [None]
  - UNRESPONSIVE TO STIMULI [None]
